FAERS Safety Report 6078489-4 (Version None)
Quarter: 2009Q1

REPORT INFORMATION
  Report Type: 
  Country: None (occurrence: None)
  Receive Date: 20090211
  Receipt Date: 20090211
  Transmission Date: 20090719
  Serious: No
  Sender: FDA-Public Use
  Company Number: None

PATIENT
  Age: 51 Year
  Sex: Female
  Weight: 79.3795 kg

DRUGS (1)
  1. METOROLOL -METOPROLOL- 25 MG [Suspect]
     Indication: HYPERTENSION
     Dosage: 1 PILL ONCE DAILY PO
     Route: 048
     Dates: start: 20061001, end: 20090201

REACTIONS (7)
  - BLOOD PRESSURE INCREASED [None]
  - CHEST PAIN [None]
  - DIZZINESS [None]
  - FLUSHING [None]
  - JOINT SWELLING [None]
  - PALPITATIONS [None]
  - THERAPEUTIC RESPONSE UNEXPECTED WITH DRUG SUBSTITUTION [None]
